FAERS Safety Report 17157571 (Version 1)
Quarter: 2019Q4

REPORT INFORMATION
  Report Type: Spontaneous
  Country: CN (occurrence: CN)
  Receive Date: 20191216
  Receipt Date: 20191216
  Transmission Date: 20200122
  Serious: Yes (Other)
  Sender: FDA-Public Use
  Company Number: CN-BAYER-2019-219722

PATIENT
  Sex: Female

DRUGS (1)
  1. AVELOX [Suspect]
     Active Substance: MOXIFLOXACIN HYDROCHLORIDE
     Dosage: 1 DF, QD
     Route: 048
     Dates: start: 2019, end: 2019

REACTIONS (5)
  - Palpitations [Not Recovered/Not Resolved]
  - Palpitations [Recovered/Resolved]
  - Myocardial ischaemia [Not Recovered/Not Resolved]
  - Cerebral ischaemia [Not Recovered/Not Resolved]
  - Dizziness [None]

NARRATIVE: CASE EVENT DATE: 2019
